FAERS Safety Report 10478375 (Version 1)
Quarter: 2014Q3

REPORT INFORMATION
  Report Type: Spontaneous
  Country: US (occurrence: None)
  Receive Date: 20140924
  Receipt Date: 20140924
  Transmission Date: 20150326
  Serious: Yes (Other)
  Sender: FDA-Public Use
  Company Number: ADE14-038

PATIENT
  Age: 65 Year
  Sex: Female
  Weight: 53 kg

DRUGS (2)
  1. HEPARIN SODIUM INJECTION, MDV, 30ML, 1,000UNITS/ML, 25X-SAGENT [Suspect]
     Active Substance: HEPARIN SODIUM
     Indication: VASCULAR GRAFT
     Dosage: 9000 U TOTAL DOSE, IV
     Route: 042
     Dates: start: 20140903, end: 20140903
  2. HEPARIN SODIUM INJECTION, MDV, 10ML, 1,000UNITS/ML, 25X SAGENT [Suspect]
     Active Substance: HEPARIN SODIUM
     Indication: VASCULAR GRAFT
     Dosage: 9,000 U TOTAL DOSE, IV
     Route: 042
     Dates: start: 20140903, end: 20140903

REACTIONS (1)
  - Drug effect decreased [None]

NARRATIVE: CASE EVENT DATE: 20140903
